FAERS Safety Report 14092244 (Version 1)
Quarter: 2017Q4

REPORT INFORMATION
  Report Type: Spontaneous
  Country: US (occurrence: US)
  Receive Date: 20171014
  Receipt Date: 20171014
  Transmission Date: 20180321
  Serious: Yes (Other)
  Sender: FDA-Public Use
  Company Number: None

PATIENT
  Sex: Female
  Weight: 65.25 kg

DRUGS (11)
  1. ARNICA RUB [Concomitant]
  2. FLECAINIDE [Concomitant]
     Active Substance: FLECAINIDE
  3. ELIQUIS [Concomitant]
     Active Substance: APIXABAN
  4. ACETAMINOPHEN. [Concomitant]
     Active Substance: ACETAMINOPHEN
  5. REFRESH EYE DROPS [Concomitant]
  6. VITAMIN D [Concomitant]
     Active Substance: CHOLECALCIFEROL
  7. ROLAIDS EXTRA STRENGTH [Concomitant]
     Active Substance: CALCIUM CARBONATE\MAGNESIUM HYDROXIDE
  8. FLUTICASONE PROPIONATE. [Concomitant]
     Active Substance: FLUTICASONE PROPIONATE
  9. DILTIAZEM HYDROCHLORIDE 240 MG EXTENDED-RELEASE CAPSULES, USP [Suspect]
     Active Substance: DILTIAZEM HYDROCHLORIDE
     Indication: ATRIAL FIBRILLATION
     Dosage: QUANTITY:1 CAPSULE(S);?
     Route: 048
     Dates: start: 20170808, end: 20170921
  10. PREMARIN VAGINAL [Concomitant]
     Active Substance: ESTROGENS, CONJUGATED
  11. DILTIAZEM CD [Concomitant]
     Active Substance: DILTIAZEM

REACTIONS (2)
  - Supraventricular extrasystoles [None]
  - Product substitution issue [None]

NARRATIVE: CASE EVENT DATE: 20170823
